FAERS Safety Report 7494094-7 (Version None)
Quarter: 2011Q2

REPORT INFORMATION
  Report Type: 
  Country: None (occurrence: None)
  Receive Date: 20110520
  Receipt Date: 20110513
  Transmission Date: 20111010
  Serious: Yes (Hospitalization)
  Sender: FDA-Public Use
  Company Number: US-ALEXION-A200900851

PATIENT
  Sex: Female

DRUGS (12)
  1. INSULIN ASPART [Concomitant]
     Dosage: 12 IU, TID
     Dates: start: 20091008
  2. LISINOPRIL [Concomitant]
     Dosage: 4 MG, QD
     Dates: start: 20091008
  3. SOLIRIS [Suspect]
     Indication: PAROXYSMAL NOCTURNAL HAEMOGLOBINURIA
     Dosage: 600 MG, WEEKLY FOR 4 WEEKS
     Route: 042
     Dates: start: 20090316, end: 20090401
  4. SOTALOL HCL [Concomitant]
     Dosage: 80 MG, QD
     Dates: start: 20091008
  5. FOLIC ACID [Concomitant]
     Dosage: 1 MG, QD
     Dates: start: 20091008
  6. LANTUS [Concomitant]
     Dosage: 50 MG, QD
     Dates: start: 20091008
  7. AMLODIPINE BESYLATE [Concomitant]
     Dosage: 5 MG, QD
     Dates: start: 20091008
  8. ESCITALOPRAM OXALATE [Concomitant]
     Dosage: 10 MG, QD
     Dates: start: 20091008
  9. COUMADIN [Suspect]
     Indication: ANTICOAGULANT THERAPY
     Dosage: UNK
     Route: 048
     Dates: start: 20091008
  10. METFORMIN HCL [Concomitant]
     Dosage: 500 MG, QD
     Dates: start: 20091008
  11. SOLIRIS [Suspect]
     Dosage: 900 MG, EVERY TWO WEEKS
     Route: 042
     Dates: start: 20090401
  12. ASPIRIN [Concomitant]
     Dosage: 81 MG, QD
     Dates: start: 20091008

REACTIONS (3)
  - SUBDURAL HAEMATOMA [None]
  - BLOOD LACTATE DEHYDROGENASE INCREASED [None]
  - HAEMOLYSIS [None]
